FAERS Safety Report 8820240 (Version 2)
Quarter: 2012Q4

REPORT INFORMATION
  Report Type: 
  Country: US (occurrence: US)
  Receive Date: 20121002
  Receipt Date: 20121022
  Transmission Date: 20130627
  Serious: Yes (Hospitalization)
  Sender: FDA-Public Use
  Company Number: US-BIOGENIDEC-2012BI040920

PATIENT
  Age: 29 Year
  Sex: Male

DRUGS (2)
  1. TYSABRI [Suspect]
     Indication: MULTIPLE SCLEROSIS
     Route: 042
     Dates: start: 20110630, end: 20121010
  2. SPICE (STREET DRUG) [Concomitant]

REACTIONS (4)
  - Convulsion [Unknown]
  - Sepsis [Unknown]
  - Memory impairment [Not Recovered/Not Resolved]
  - Pneumonia aspiration [Not Recovered/Not Resolved]
